FAERS Safety Report 4907778-9 (Version None)
Quarter: 2006Q1

REPORT INFORMATION
  Report Type: 
  Country: None (occurrence: None)
  Receive Date: 20060208
  Receipt Date: 20060208
  Transmission Date: 20060701
  Serious: No
  Sender: FDA-Public Use
  Company Number: None

PATIENT
  Age: 86 Year
  Sex: Male
  Weight: 63.1 kg

DRUGS (1)
  1. NPH INSULIN [Suspect]
     Dosage: 22 UNITS Q AM SUBQ; 7 UNITS AT 4:30 PM SUBQ
     Route: 058
     Dates: start: 20040901

REACTIONS (1)
  - HYPOGLYCAEMIA [None]
